FAERS Safety Report 24438931 (Version 1)
Quarter: 2024Q4

REPORT INFORMATION
  Report Type: Spontaneous
  Country: PL (occurrence: PL)
  Receive Date: 20241015
  Receipt Date: 20241015
  Transmission Date: 20250115
  Serious: Yes (Hospitalization)
  Sender: TEVA
  Company Number: None

PATIENT
  Age: 85 Year
  Sex: Female

DRUGS (7)
  1. BISOPROLOL [Suspect]
     Active Substance: BISOPROLOL\BISOPROLOL FUMARATE
     Indication: Hypertension
     Dosage: BISORATIO
     Route: 048
     Dates: end: 20201125
  2. BIORACEF [Concomitant]
     Indication: Urinary tract infection
     Dosage: THERAPY ONGOING
     Route: 048
     Dates: start: 20201117
  3. RAMIPRIL [Suspect]
     Active Substance: RAMIPRIL
     Indication: Hypertension
     Route: 048
  4. MESTINON [Suspect]
     Active Substance: PYRIDOSTIGMINE BROMIDE
     Indication: Myasthenia gravis
     Dosage: FIVE TIMES A DAY (08:00, 11:00, 14:00, 17:00, 20:00)
     Route: 048
  5. INDAPAMIDE [Suspect]
     Active Substance: INDAPAMIDE
     Indication: Hypertension
     Route: 048
  6. ACARD [Concomitant]
     Indication: Prophylaxis
     Route: 048
  7. ATROX [Concomitant]
     Indication: Myasthenia gravis
     Route: 048

REACTIONS (4)
  - Anaemia [Recovering/Resolving]
  - Urinary tract infection [Recovering/Resolving]
  - Sinus bradycardia [Recovering/Resolving]
  - Fall [Recovering/Resolving]

NARRATIVE: CASE EVENT DATE: 20201119
